FAERS Safety Report 17918183 (Version 2)
Quarter: 2020Q2

REPORT INFORMATION
  Report Type: Report from Study
  Country: BR (occurrence: BR)
  Receive Date: 20200619
  Receipt Date: 20200624
  Transmission Date: 20200714
  Serious: Yes (Other)
  Sender: FDA-Public Use
  Company Number: BR-JNJFOC-20200320957

PATIENT
  Sex: Female
  Weight: 72 kg

DRUGS (5)
  1. STELARA [Suspect]
     Active Substance: USTEKINUMAB
     Indication: PSORIASIS
     Route: 058
     Dates: start: 20190926
  2. LEXAPRO [Concomitant]
     Active Substance: ESCITALOPRAM OXALATE
  3. COZAAR [Concomitant]
     Active Substance: LOSARTAN POTASSIUM
  4. STELARA [Suspect]
     Active Substance: USTEKINUMAB
  5. CONCARDIO [Concomitant]
     Active Substance: BISOPROLOL FUMARATE
     Route: 065

REACTIONS (7)
  - Throat irritation [Unknown]
  - Arthralgia [Not Recovered/Not Resolved]
  - Anxiety [Not Recovered/Not Resolved]
  - Hypoaesthesia [Unknown]
  - Cataract [Recovering/Resolving]
  - Weight increased [Unknown]
  - Psoriasis [Not Recovered/Not Resolved]

NARRATIVE: CASE EVENT DATE: 2019
